FAERS Safety Report 16155486 (Version 2)
Quarter: 2020Q4

REPORT INFORMATION
  Report Type: Report from Study
  Country: ES (occurrence: ES)
  Receive Date: 20190404
  Receipt Date: 20201029
  Transmission Date: 20210113
  Serious: Yes (Other)
  Sender: FDA-Public Use
  Company Number: ES-ROCHE-2291956

PATIENT
  Age: 50 Year
  Sex: Male

DRUGS (6)
  1. BENDAMUSTINE [Suspect]
     Active Substance: BENDAMUSTINE
     Route: 042
     Dates: start: 20190305
  2. INCB050465 [Suspect]
     Active Substance: PARSACLISIB HYDROCHLORIDE
     Route: 048
     Dates: start: 20190305
  3. OBINUTUZUMAB. [Suspect]
     Active Substance: OBINUTUZUMAB
     Dosage: LAST DOSE ON 10/JAN/2019
     Route: 042
     Dates: start: 20190305
  4. OBINUTUZUMAB. [Suspect]
     Active Substance: OBINUTUZUMAB
     Indication: B-CELL LYMPHOMA
     Dosage: LAST DOSE ON 10/JAN/2019
     Route: 042
     Dates: start: 20181121, end: 20190110
  5. BENDAMUSTINE [Suspect]
     Active Substance: BENDAMUSTINE
     Indication: B-CELL LYMPHOMA
     Dosage: LAST DOSE ON 11/JAN/2019
     Route: 042
     Dates: start: 20181121, end: 20190111
  6. INCB050465 [Suspect]
     Active Substance: PARSACLISIB HYDROCHLORIDE
     Indication: B-CELL LYMPHOMA
     Dosage: LAST DOSE ON 07/FEB/2019
     Route: 048
     Dates: start: 20181121, end: 20190207

REACTIONS (3)
  - Aspartate aminotransferase increased [Recovered/Resolved]
  - Blood bilirubin increased [Recovered/Resolved]
  - Alanine aminotransferase increased [Recovered/Resolved]

NARRATIVE: CASE EVENT DATE: 20190213
